FAERS Safety Report 16712603 (Version 1)
Quarter: 2019Q3

REPORT INFORMATION
  Report Type: Report from Study
  Country: None (occurrence: CO)
  Receive Date: 20190816
  Receipt Date: 20190816
  Transmission Date: 20191004
  Serious: Yes (Hospitalization)
  Sender: FDA-Public Use
  Company Number: CO-ABBVIE-19K-036-2892084-00

PATIENT
  Age: 2 Month
  Sex: Male
  Weight: 3 kg

DRUGS (1)
  1. SYNAGIS [Suspect]
     Active Substance: PALIVIZUMAB
     Indication: PREMATURE BABY
     Route: 030
     Dates: start: 20190731

REACTIONS (3)
  - Pneumonia [Recovering/Resolving]
  - Vomiting [Recovering/Resolving]
  - Apnoea [Recovering/Resolving]

NARRATIVE: CASE EVENT DATE: 20190811
